FAERS Safety Report 16797565 (Version 1)
Quarter: 2019Q3

REPORT INFORMATION
  Report Type: Spontaneous
  Country: None (occurrence: US)
  Receive Date: 20190912
  Receipt Date: 20190912
  Transmission Date: 20191005
  Serious: No
  Sender: FDA-Public Use
  Company Number: US-ITALFARMACO SPA-2074375

PATIENT
  Age: 57 Year
  Sex: Female

DRUGS (2)
  1. PROPRANOLOL [Concomitant]
     Active Substance: PROPRANOLOL HYDROCHLORIDE
  2. TIGLUTIK [Suspect]
     Active Substance: RILUZOLE
     Indication: AMYOTROPHIC LATERAL SCLEROSIS
     Dates: start: 20190805

REACTIONS (4)
  - Product use issue [Unknown]
  - Dizziness [Recovering/Resolving]
  - Off label use [Unknown]
  - Fatigue [Recovering/Resolving]
